FAERS Safety Report 4439424-5 (Version None)
Quarter: 2004Q3

REPORT INFORMATION
  Report Type: 
  Country: None (occurrence: None)
  Receive Date: 20040728
  Receipt Date: 20040325
  Transmission Date: 20050211
  Serious: No
  Sender: FDA-Public Use
  Company Number: USA040362276

PATIENT
  Age: 7 Year
  Sex: Male
  Weight: 17 kg

DRUGS (1)
  1. STRATTERA [Suspect]
     Indication: ATTENTION DEFICIT/HYPERACTIVITY DISORDER
     Dosage: 40 MG/3 DAY
     Dates: start: 20040312

REACTIONS (11)
  - ABNORMAL BEHAVIOUR [None]
  - ACCIDENTAL OVERDOSE [None]
  - AGITATION [None]
  - FATIGUE [None]
  - HEADACHE [None]
  - HYPERTENSION [None]
  - LETHARGY [None]
  - MEDICATION ERROR [None]
  - OXYGEN SATURATION DECREASED [None]
  - PRESCRIBED OVERDOSE [None]
  - PSYCHOMOTOR HYPERACTIVITY [None]
